FAERS Safety Report 21407373 (Version 1)
Quarter: 2022Q4

REPORT INFORMATION
  Report Type: Spontaneous
  Country: US (occurrence: None)
  Receive Date: 20221003
  Receipt Date: 20221003
  Transmission Date: 20230112
  Serious: No
  Sender: FDA-Public Use
  Company Number: None

PATIENT
  Age: 68 Year
  Sex: Male
  Weight: 74.25 kg

DRUGS (6)
  1. PAREMYD [Suspect]
     Active Substance: HYDROXYAMPHETAMINE HYDROBROMIDE\TROPICAMIDE
  2. PROPARACAINE [Suspect]
     Active Substance: PROPARACAINE
  3. Multi vites for male adults [Concomitant]
  4. vite C [Concomitant]
  5. vite E [Concomitant]
  6. FISH OIL [Concomitant]

REACTIONS (3)
  - Visual impairment [None]
  - Mydriasis [None]
  - Drug interaction [None]

NARRATIVE: CASE EVENT DATE: 20220926
